FAERS Safety Report 10539157 (Version 3)
Quarter: 2014Q4

REPORT INFORMATION
  Report Type: Spontaneous
  Country: US (occurrence: US)
  Receive Date: 20141023
  Receipt Date: 20141209
  Transmission Date: 20150529
  Serious: No
  Sender: FDA-Public Use
  Company Number: US-PFIZER INC-2014289029

PATIENT
  Age: 77 Year
  Sex: Female
  Weight: 77 kg

DRUGS (2)
  1. PYRIDOSTIGMINE [Concomitant]
     Active Substance: PYRIDOSTIGMINE
     Indication: EYE DISORDER
     Dosage: 1 TABLET, 3 TIMES PER DAY
  2. ADVIL PM [Suspect]
     Active Substance: DIPHENHYDRAMINE CITRATE\IBUPROFEN
     Indication: INSOMNIA
     Dosage: 1 PILL ONCE AT BED TIME
     Route: 048
     Dates: end: 2014

REACTIONS (2)
  - Drug ineffective [Recovered/Resolved]
  - Nervousness [Recovered/Resolved]

NARRATIVE: CASE EVENT DATE: 20141013
